FAERS Safety Report 22214433 (Version 1)
Quarter: 2023Q2

REPORT INFORMATION
  Report Type: Spontaneous
  Country: KR (occurrence: KR)
  Receive Date: 20230414
  Receipt Date: 20230414
  Transmission Date: 20230722
  Serious: Yes (Other)
  Sender: FDA-Public Use
  Company Number: KR-ANIPHARMA-2023-KR-000022

PATIENT
  Age: 65 Year
  Sex: Male

DRUGS (4)
  1. CASODEX [Suspect]
     Active Substance: BICALUTAMIDE
     Indication: Prostate cancer
     Route: 048
     Dates: start: 20200915, end: 20210713
  2. DOCETAXEL, PREDNISONE [Concomitant]
     Route: 065
     Dates: start: 20210909, end: 20211223
  3. ENZALUTAMIDE [Concomitant]
     Active Substance: ENZALUTAMIDE
     Route: 065
     Dates: start: 20220419
  4. GONADOTROPIN-RELEASING HORMONES [Concomitant]
     Active Substance: GONADORELIN
     Route: 065
     Dates: start: 20201103

REACTIONS (2)
  - Metastases to bone [Unknown]
  - Metastases to lymph nodes [Unknown]
